FAERS Safety Report 5524945-4 (Version None)
Quarter: 2007Q4

REPORT INFORMATION
  Report Type: 
  Country: None (occurrence: None)
  Receive Date: 20071119
  Receipt Date: 20071105
  Transmission Date: 20080405
  Serious: Yes (Other)
  Sender: FDA-Public Use
  Company Number: 2007P1000702

PATIENT

DRUGS (1)
  1. NICARDIPINE HYDROCHLORIDE [Suspect]
     Indication: HYPERTENSION
     Dosage: IV
     Route: 042

REACTIONS (1)
  - ECG SIGNS OF MYOCARDIAL ISCHAEMIA [None]
